FAERS Safety Report 4698569-5 (Version None)
Quarter: 2005Q2

REPORT INFORMATION
  Report Type: 
  Country: None (occurrence: None)
  Receive Date: 20050622
  Receipt Date: 20050610
  Transmission Date: 20051028
  Serious: Yes (Hospitalization, Other)
  Sender: FDA-Public Use
  Company Number: 2005-02027

PATIENT
  Age: 30 Year
  Sex: Female

DRUGS (1)
  1. QUININE SULFATE [Suspect]
     Indication: MUSCLE SPASMS
     Dosage: 60 MG, QHS; ORAL
     Route: 048
     Dates: start: 20010401, end: 20010401

REACTIONS (6)
  - COGNITIVE DISORDER [None]
  - CONTUSION [None]
  - PETECHIAE [None]
  - SPEECH DISORDER [None]
  - THOUGHT BLOCKING [None]
  - THROMBOCYTOPENIA [None]
